FAERS Safety Report 21796578 (Version 3)
Quarter: 2023Q2

REPORT INFORMATION
  Report Type: Report from Study
  Country: US (occurrence: US)
  Receive Date: 20221229
  Receipt Date: 20230615
  Transmission Date: 20230721
  Serious: No
  Sender: FDA-Public Use
  Company Number: US-ACADIA PHARMACEUTICALS INC.-ACA-2022-PIM-004247

PATIENT
  Sex: Male

DRUGS (2)
  1. NUPLAZID [Suspect]
     Active Substance: PIMAVANSERIN TARTRATE
     Indication: Parkinson^s disease
     Dosage: 34 MILLIGRAM, QD
     Route: 048
     Dates: start: 20221121
  2. NUPLAZID [Suspect]
     Active Substance: PIMAVANSERIN TARTRATE
     Dosage: 34 MILLIGRAM, QD
     Route: 048
     Dates: start: 20221201

REACTIONS (10)
  - Mental disorder [Unknown]
  - Asthenia [Unknown]
  - Malaise [Unknown]
  - Balance disorder [Unknown]
  - Fatigue [Unknown]
  - Muscle spasms [Unknown]
  - Hallucination, visual [Unknown]
  - Hallucination [Unknown]
  - Somnolence [Unknown]
  - Drug ineffective [Unknown]
